FAERS Safety Report 10879052 (Version 1)
Quarter: 2015Q1

REPORT INFORMATION
  Report Type: Spontaneous
  Country: None (occurrence: None)
  Receive Date: 20150224
  Receipt Date: 20150224
  Transmission Date: 20150721
  Serious: No
  Sender: FDA-Public Use
  Company Number: None

PATIENT
  Age: 63 Year
  Sex: Female

DRUGS (1)
  1. SENSIPAR [Suspect]
     Active Substance: CINACALCET HYDROCHLORIDE
     Indication: HYPERPARATHYROIDISM SECONDARY
     Dosage: ONE TAB QD ORAL
     Route: 048

REACTIONS (4)
  - Pain in extremity [None]
  - Myalgia [None]
  - Bone pain [None]
  - Paraesthesia [None]

NARRATIVE: CASE EVENT DATE: 20150223
